FAERS Safety Report 6827142-5 (Version None)
Quarter: 2010Q3

REPORT INFORMATION
  Report Type: 
  Country: None (occurrence: None)
  Receive Date: 20100709
  Receipt Date: 20100705
  Transmission Date: 20110219
  Serious: Yes (Hospitalization)
  Sender: FDA-Public Use
  Company Number: US-BRISTOL-MYERS SQUIBB COMPANY-15181530

PATIENT

DRUGS (1)
  1. ABILIFY [Suspect]
     Dates: start: 20090101

REACTIONS (1)
  - DRUG INTERACTION [None]
